FAERS Safety Report 8623361-6 (Version None)
Quarter: 2012Q3

REPORT INFORMATION
  Report Type: 
  Country: None (occurrence: None)
  Receive Date: 20120824
  Receipt Date: 20120824
  Transmission Date: 20120928
  Serious: Yes (Hospitalization)
  Sender: FDA-Public Use
  Company Number: None

PATIENT
  Age: 66 Year
  Sex: Female
  Weight: 61 kg

DRUGS (18)
  1. PEMETREXED [Concomitant]
  2. BEVACIZUMAB [Suspect]
     Indication: LUNG NEOPLASM MALIGNANT
     Dosage: REFER TO BOX #10
  3. VITAMIN D [Concomitant]
  4. SULFAMETHOXAZOLE AND TRIMETHOPRIM DOUBLE STRENGTH [Concomitant]
  5. DEXAMETHASONE [Concomitant]
  6. OMEPRAZOLE SR [Concomitant]
  7. PROCTOFOAM [Concomitant]
  8. CARBOPLATIN [Concomitant]
  9. AUQUADEKS SOFT GEL [Concomitant]
  10. CREON [Concomitant]
  11. FOLIC ACID [Concomitant]
  12. NOXAFIL [Concomitant]
  13. SYNTHROID [Concomitant]
  14. BEVACIZUMAB [Concomitant]
  15. VITAMIN B COMPLEX CAP [Concomitant]
  16. POSACONAZOLE [Concomitant]
  17. PREDNISONE [Concomitant]
  18. LEVAQUIN [Concomitant]

REACTIONS (3)
  - ANAL FISTULA [None]
  - PERIRECTAL ABSCESS [None]
  - TRACHEO-OESOPHAGEAL FISTULA [None]
